FAERS Safety Report 9640402 (Version 2)
Quarter: 2013Q4

REPORT INFORMATION
  Report Type: Spontaneous
  Country: US (occurrence: None)
  Receive Date: 20131021
  Receipt Date: 20131104
  Transmission Date: 20140711
  Serious: Yes (Other)
  Sender: FDA-Public Use
  Company Number: 2013P1020207

PATIENT
  Age: 31 Year
  Sex: Female

DRUGS (2)
  1. MYORISAN [Suspect]
     Dates: start: 20130601, end: 20130919
  2. UNSPECIFIED BIRTH CONTROL PILL [Concomitant]

REACTIONS (3)
  - Pregnancy test positive [None]
  - Abortion induced [None]
  - Exposure during pregnancy [None]
